FAERS Safety Report 8707234 (Version 2)
Quarter: 2012Q4

REPORT INFORMATION
  Report Type: 
  Country: JP (occurrence: JP)
  Receive Date: 20120803
  Receipt Date: 20121019
  Transmission Date: 20130627
  Serious: Yes (Hospitalization, Other)
  Sender: FDA-Public Use
  Company Number: JP-GILEAD-2012-0051457

PATIENT
  Age: 41 None
  Sex: Male

DRUGS (5)
  1. HEPSERA [Suspect]
     Indication: HEPATITIS B
     Dosage: 10MG Per day
     Route: 048
     Dates: start: 20071002, end: 20120221
  2. HEPSERA [Suspect]
     Dosage: 10 mg 3 times per day
     Route: 048
     Dates: start: 20120221
  3. HEPSERA [Suspect]
     Dosage: 10MG Per day
     Route: 048
     Dates: start: 20120222
  4. ZEFIX [Concomitant]
     Indication: HEPATITIS B
     Dosage: 100MG Per day
     Route: 048
     Dates: start: 20031211, end: 20120221
  5. ZEFIX [Concomitant]
     Dosage: 50MG Per day
     Route: 048
     Dates: start: 20120222

REACTIONS (7)
  - Renal disorder [Unknown]
  - Tubulointerstitial nephritis [Not Recovered/Not Resolved]
  - Fanconi syndrome [Not Recovered/Not Resolved]
  - Renal impairment [Unknown]
  - Blood alkaline phosphatase increased [Recovering/Resolving]
  - Blood creatinine increased [Recovering/Resolving]
  - Cystine urine present [Unknown]
